FAERS Safety Report 6426250-0 (Version None)
Quarter: 2009Q4

REPORT INFORMATION
  Report Type: 
  Country: None (occurrence: None)
  Receive Date: 20091104
  Receipt Date: 20091022
  Transmission Date: 20100525
  Serious: Yes (Hospitalization, Disabling)
  Sender: FDA-Public Use
  Company Number: FR-ROCHE-656442

PATIENT
  Sex: Male
  Weight: 72 kg

DRUGS (1)
  1. METHOXY POLYETHYLENE GLYCOL-EPOETIN BETA (MIRCERA) [Suspect]
     Dosage: DOSE: 75, UNIT:NOT PROVIDED, LAST DOSE PRIOR TO SAE: 27 JULY 2009. FORM: PRE-FILLED SYRINGE.
     Route: 065
     Dates: start: 20090407, end: 20091019

REACTIONS (4)
  - CELLULITIS [None]
  - LYMPHANGITIS [None]
  - OPTIC ISCHAEMIC NEUROPATHY [None]
  - THROMBOSIS [None]
